FAERS Safety Report 5213015-0 (Version None)
Quarter: 2007Q1

REPORT INFORMATION
  Report Type: 
  Country: None (occurrence: None)
  Receive Date: 20070112
  Receipt Date: 20061229
  Transmission Date: 20070707
  Serious: Yes (Other)
  Sender: FDA-Public Use
  Company Number: 2007BI000294

PATIENT
  Sex: Male

DRUGS (2)
  1. ZEVALIN [Suspect]
     Indication: B-CELL LYMPHOMA STAGE IV
     Dosage: 0.3 MCI/KG; IX; IV
     Route: 042
     Dates: start: 20061124, end: 20061124
  2. RITUXIMAB [Concomitant]

REACTIONS (3)
  - EXCORIATION [None]
  - LYMPHADENOPATHY [None]
  - SKIN ULCER [None]
